FAERS Safety Report 22063159 (Version 1)
Quarter: 2023Q1

REPORT INFORMATION
  Report Type: Spontaneous
  Country: FR (occurrence: FR)
  Receive Date: 20230306
  Receipt Date: 20230306
  Transmission Date: 20230418
  Serious: Yes (Hospitalization, Other)
  Sender: FDA-Public Use
  Company Number: FR-ORGANON-O2302FRA002566

PATIENT
  Age: 79 Year
  Sex: Male

DRUGS (3)
  1. SINEMET [Suspect]
     Active Substance: CARBIDOPA\LEVODOPA
     Indication: Parkinson^s disease
     Dosage: 1 TABLET(100/10) AT NOON
     Route: 048
     Dates: end: 20230212
  2. CARBIDOPA\LEVODOPA [Suspect]
     Active Substance: CARBIDOPA\LEVODOPA
     Indication: Parkinson^s disease
     Dosage: 1 TABLET (200/50) IN MORNING AND NOON
     Route: 048
     Dates: end: 20230212
  3. CARBIDOPA\LEVODOPA [Suspect]
     Active Substance: CARBIDOPA\LEVODOPA
     Indication: Parkinson^s disease
     Dosage: 1 TABLET(100/25) IN THE EVENING
     Route: 048
     Dates: end: 20230212

REACTIONS (4)
  - Loss of consciousness [Unknown]
  - Myocardial infarction [Unknown]
  - Dysphagia [Unknown]
  - Wrong technique in product usage process [Unknown]

NARRATIVE: CASE EVENT DATE: 20230201
